FAERS Safety Report 5133105-0 (Version None)
Quarter: 2006Q4

REPORT INFORMATION
  Report Type: 
  Country: None (occurrence: None)
  Receive Date: 20061017
  Receipt Date: 20060912
  Transmission Date: 20070319
  Serious: Yes (Death)
  Sender: FDA-Public Use
  Company Number: 230224

PATIENT
  Age: 80 Year
  Sex: Male

DRUGS (3)
  1. AVASTIN [Suspect]
     Indication: HEPATIC NEOPLASM MALIGNANT
     Dosage: INTRAVENOUS
     Route: 042
     Dates: start: 20060117
  2. XELODA [Concomitant]
  3. CAPECITABINE (CAPECITABINE) [Concomitant]

REACTIONS (3)
  - ABDOMINAL PAIN [None]
  - ALPHA 1 FOETOPROTEIN DECREASED [None]
  - VOMITING [None]
